FAERS Safety Report 22537178 (Version 3)
Quarter: 2024Q3

REPORT INFORMATION
  Report Type: Report from Study
  Country: IT (occurrence: IT)
  Receive Date: 20230608
  Receipt Date: 20240715
  Transmission Date: 20241017
  Serious: Yes (Hospitalization, Other)
  Sender: TEVA
  Company Number: None

PATIENT
  Age: 15 Year
  Sex: Female
  Weight: 50 kg

DRUGS (4)
  1. VINCRISTINE [Suspect]
     Active Substance: VINCRISTINE
     Indication: Hodgkin^s disease
     Dosage: 2 MG/DAY ON 04/21, 04/28 AND 05/08/23, VINCRISTINA TEVA ITALIA
     Route: 042
     Dates: start: 20230421, end: 20230508
  2. PREDNISONE [Concomitant]
     Active Substance: PREDNISONE
     Indication: Hodgkin^s disease
     Dosage: 30 MG X 3 TIMES/DAY
     Route: 065
     Dates: start: 20230418, end: 20230505
  3. ETOPOSIDE [Suspect]
     Active Substance: ETOPOSIDE
     Indication: Hodgkin^s disease
     Dosage: ETOPOSIDE SANDOZ
     Route: 042
     Dates: start: 20230421, end: 20230425
  4. DOXORUBICIN HYDROCHLORIDE [Suspect]
     Active Substance: DOXORUBICIN HYDROCHLORIDE
     Indication: Hodgkin^s disease
     Dosage: DOXORUBICINA ACCORD HEALTHCARE ITALIA
     Route: 042
     Dates: start: 20230421, end: 20230508

REACTIONS (4)
  - Febrile neutropenia [Recovered/Resolved]
  - Leukopenia [Recovered/Resolved]
  - Alanine aminotransferase increased [Not Recovered/Not Resolved]
  - Alopecia [Recovered/Resolved]

NARRATIVE: CASE EVENT DATE: 20230428
